FAERS Safety Report 11831578 (Version 1)
Quarter: 2015Q4

REPORT INFORMATION
  Report Type: Spontaneous
  Country: BR (occurrence: BR)
  Receive Date: 20151214
  Receipt Date: 20151214
  Transmission Date: 20160305
  Serious: Yes (Other)
  Sender: FDA-Public Use
  Company Number: BR-PFIZER INC-2015390913

PATIENT
  Age: 79 Year
  Sex: Female

DRUGS (2)
  1. LYRICA [Suspect]
     Active Substance: PREGABALIN
     Indication: PAIN
     Dosage: 75 MG, UNK
     Dates: end: 20151111
  2. LYRICA [Suspect]
     Active Substance: PREGABALIN
     Indication: ARTHRALGIA

REACTIONS (18)
  - Synovial disorder [Unknown]
  - Drug ineffective for unapproved indication [Unknown]
  - Gastric dilatation [Not Recovered/Not Resolved]
  - Nervousness [Unknown]
  - Anxiety [Unknown]
  - Spinal pain [Not Recovered/Not Resolved]
  - Osteoarthritis [Unknown]
  - Somnolence [Unknown]
  - Asthma [Unknown]
  - Peripheral vascular disorder [Unknown]
  - Bronchitis [Unknown]
  - Hunger [Unknown]
  - Swelling [Not Recovered/Not Resolved]
  - Memory impairment [Unknown]
  - Feeling abnormal [Unknown]
  - Pain in extremity [Not Recovered/Not Resolved]
  - Arthritis [Unknown]
  - Sinusitis [Unknown]
